FAERS Safety Report 4456818-2 (Version None)
Quarter: 2004Q3

REPORT INFORMATION
  Report Type: 
  Country: None (occurrence: None)
  Receive Date: 20040923
  Receipt Date: 20040913
  Transmission Date: 20050211
  Serious: Yes (Hospitalization)
  Sender: FDA-Public Use
  Company Number: US-AMGEN-US091338

PATIENT
  Age: 75 Year
  Sex: Male

DRUGS (1)
  1. EPOGEN [Suspect]
     Indication: ANAEMIA OF MALIGNANT DISEASE
     Route: 058

REACTIONS (2)
  - HAEMOGLOBIN DECREASED [None]
  - PNEUMONIA [None]
